FAERS Safety Report 17915963 (Version 1)
Quarter: 2020Q2

REPORT INFORMATION
  Report Type: Spontaneous
  Country: US (occurrence: US)
  Receive Date: 20200618
  Receipt Date: 20200618
  Transmission Date: 20200714
  Serious: Yes (Death)
  Sender: FDA-Public Use
  Company Number: None

PATIENT
  Age: 68 Year
  Sex: Male
  Weight: 158 kg

DRUGS (20)
  1. SEROQUEL [Concomitant]
     Active Substance: QUETIAPINE FUMARATE
     Dates: start: 20200523, end: 20200602
  2. PROPOFOL. [Concomitant]
     Active Substance: PROPOFOL
     Dates: start: 20200528
  3. HEPARIN [Concomitant]
     Active Substance: HEPARIN SODIUM
     Dates: start: 20200522, end: 20200526
  4. DOCUSATE [Concomitant]
     Active Substance: DOCUSATE
     Dates: start: 20200522, end: 20200613
  5. MEROPENEM. [Concomitant]
     Active Substance: MEROPENEM
     Dates: start: 20200520, end: 20200601
  6. ASCOBIC ACID [Concomitant]
     Dates: start: 20200518, end: 20200613
  7. REMDESIVIR. [Suspect]
     Active Substance: REMDESIVIR
     Indication: COVID-19
     Route: 042
     Dates: start: 20200520, end: 20200520
  8. REMDESIVIR. [Suspect]
     Active Substance: REMDESIVIR
     Indication: COVID-19
     Route: 042
     Dates: start: 20200521, end: 20200529
  9. FENTANYL. [Concomitant]
     Active Substance: FENTANYL
     Dates: start: 20200517, end: 20200613
  10. ATIVAN [Concomitant]
     Active Substance: LORAZEPAM
     Dates: start: 20200520, end: 20200523
  11. VERSED [Concomitant]
     Active Substance: MIDAZOLAM HYDROCHLORIDE
     Dates: start: 20200609, end: 20200613
  12. VANCOMYCIN [Concomitant]
     Active Substance: VANCOMYCIN
     Dates: start: 20200520, end: 20200601
  13. NOREPINEOHRINE [Concomitant]
     Dates: start: 20200530, end: 20200613
  14. APIXABN [Concomitant]
     Dates: start: 20200526, end: 20200613
  15. HUMALOG [Concomitant]
     Active Substance: INSULIN LISPRO
     Dates: start: 20200514, end: 20200601
  16. SELENIUM [Concomitant]
     Active Substance: SELENIUM
     Dates: start: 20200518, end: 20200613
  17. ROCURONIUM [Concomitant]
     Active Substance: ROCURONIUM BROMIDE
     Dates: start: 20200602, end: 20200613
  18. CEFEPIME [Concomitant]
     Active Substance: CEFEPIME HYDROCHLORIDE
     Dates: start: 20200609, end: 20200613
  19. ZINC SULFATE. [Concomitant]
     Active Substance: ZINC SULFATE
     Dates: start: 20200518, end: 20200613
  20. VITAMIN D3 [Concomitant]
     Active Substance: CHOLECALCIFEROL
     Dates: start: 20200518, end: 20200613

REACTIONS (9)
  - Acute respiratory failure [None]
  - Hypoxia [None]
  - Respiratory acidosis [None]
  - Acute kidney injury [None]
  - Condition aggravated [None]
  - Pseudomonas test positive [None]
  - Lung consolidation [None]
  - Dialysis [None]
  - Multiple organ dysfunction syndrome [None]

NARRATIVE: CASE EVENT DATE: 20200614
